FAERS Safety Report 4535354-9 (Version None)
Quarter: 2004Q4

REPORT INFORMATION
  Report Type: 
  Country: None (occurrence: None)
  Receive Date: 20041222
  Receipt Date: 20041104
  Transmission Date: 20050328
  Serious: Yes (Life-Threatening, Other)
  Sender: FDA-Public Use
  Company Number: JP-ABBOTT-04P-087-0282408-00

PATIENT
  Sex: Male

DRUGS (24)
  1. SEVORANE LIQUID FOR INHALATION [Suspect]
     Indication: ANAESTHESIA
     Route: 055
     Dates: start: 20000307, end: 20000307
  2. SUXAMETHONIUM CHLORIDE [Suspect]
     Indication: MUSCLE RELAXANT THERAPY
     Route: 042
     Dates: start: 20000307, end: 20000307
  3. HYOSCINE HBR HYT [Concomitant]
     Indication: PREOPERATIVE CARE
     Route: 042
     Dates: start: 20000305, end: 20000305
  4. DIMETICONE [Concomitant]
     Indication: PREOPERATIVE CARE
     Route: 048
     Dates: start: 20000305, end: 20000305
  5. LIDOCAINE HCL [Concomitant]
     Indication: PREOPERATIVE CARE
     Route: 048
     Dates: start: 20000305, end: 20000305
  6. LIDOCAINE HCL [Concomitant]
     Route: 048
     Dates: start: 20000305, end: 20000305
  7. LIDOCAINE HCL [Concomitant]
     Route: 048
     Dates: start: 20000305, end: 20000305
  8. PRONASE [Concomitant]
     Indication: PREOPERATIVE CARE
     Route: 048
     Dates: start: 20000305, end: 20000305
  9. SODIUM BICARBONATE [Concomitant]
     Indication: PREOPERATIVE CARE
     Route: 048
     Dates: start: 20000305, end: 20000305
  10. GLYCEROL 2.6% [Concomitant]
     Indication: PREMEDICATION
     Route: 054
     Dates: start: 20000306, end: 20000306
  11. TRIAZOLAM [Concomitant]
     Indication: PREMEDICATION
     Route: 048
     Dates: start: 20000306, end: 20000306
  12. SODIUM PICOSULFATE [Concomitant]
     Indication: PREMEDICATION
     Route: 048
     Dates: start: 20000306, end: 20000306
  13. SOLDEM [Concomitant]
     Indication: FLUID REPLACEMENT
     Dates: start: 20000307, end: 20000308
  14. CEFAZOLIN SODIUM [Concomitant]
     Indication: ANTIBACTERIAL PROPHYLAXIS
     Route: 042
     Dates: start: 20000307, end: 20000307
  15. ATROPINE SULFATE [Concomitant]
     Indication: PREMEDICATION
     Route: 030
     Dates: start: 20000307, end: 20000307
  16. HYDROXYZINE HYDROCHLORIDE [Concomitant]
     Indication: PREMEDICATION
     Route: 030
     Dates: start: 20000307, end: 20000307
  17. THIOPENTAL SODIUM [Concomitant]
     Indication: ANAESTHESIA
     Route: 042
     Dates: start: 20000307, end: 20000307
  18. MEPIVACAINE HCL [Concomitant]
     Indication: ANAESTHESIA
     Route: 008
     Dates: start: 20000307, end: 20000307
  19. PANCURONIUM BROMIDE [Concomitant]
     Indication: MUSCLE RELAXANT THERAPY
     Route: 042
     Dates: start: 20000307, end: 20000307
  20. NITROUS OXIDE [Concomitant]
     Indication: ANAESTHESIA
     Route: 055
     Dates: start: 20000307, end: 20000307
  21. EUFUSOL [Concomitant]
     Indication: FLUID REPLACEMENT
     Dates: start: 20000307, end: 20000307
  22. ATROPINE SULFATE [Concomitant]
     Indication: ANAESTHESIA REVERSAL
     Route: 042
     Dates: start: 20000307, end: 20000307
  23. NEOSTIGMINE METILSULFATE [Concomitant]
     Indication: ANAESTHESIA REVERSAL
     Route: 042
     Dates: start: 20000307, end: 20000307
  24. MORPHINE HYDROCHLORIDE [Concomitant]
     Indication: ANALGESIC EFFECT
     Route: 008
     Dates: start: 20000307, end: 20000308

REACTIONS (4)
  - CHROMATURIA [None]
  - HAEMODIALYSIS [None]
  - RENAL FAILURE ACUTE [None]
  - RHABDOMYOLYSIS [None]
